FAERS Safety Report 18735189 (Version 1)
Quarter: 2021Q1

REPORT INFORMATION
  Report Type: Spontaneous
  Country: US (occurrence: US)
  Receive Date: 20210113
  Receipt Date: 20210113
  Transmission Date: 20210419
  Serious: Yes (Death)
  Sender: FDA-Public Use
  Company Number: None

PATIENT
  Age: 4 Year
  Sex: Female
  Weight: 20.7 kg

DRUGS (6)
  1. VINCRISTINE SULFATE. [Concomitant]
     Active Substance: VINCRISTINE SULFATE
  2. CYTARABINE. [Concomitant]
     Active Substance: CYTARABINE
  3. ONCASPAR [Concomitant]
     Active Substance: PEGASPARGASE
  4. DAUNORUBICIN [Suspect]
     Active Substance: DAUNORUBICIN
  5. DEXAMETHASONE. [Concomitant]
     Active Substance: DEXAMETHASONE
  6. METHOTREXATE. [Concomitant]
     Active Substance: METHOTREXATE

REACTIONS (5)
  - Pulse absent [None]
  - Lethargy [None]
  - Sepsis [None]
  - Blood pH decreased [None]
  - Pulseless electrical activity [None]

NARRATIVE: CASE EVENT DATE: 20210111
